FAERS Safety Report 5082151-4 (Version None)
Quarter: 2006Q3

REPORT INFORMATION
  Report Type: 
  Country: None (occurrence: None)
  Receive Date: 20060720
  Receipt Date: 20060426
  Transmission Date: 20061208
  Serious: Yes (Hospitalization, Other)
  Sender: FDA-Public Use
  Company Number: 2006057749

PATIENT
  Age: 56 Year
  Sex: Female
  Weight: 58.0604 kg

DRUGS (2)
  1. CELEBREX [Suspect]
     Indication: BACK INJURY
     Dosage: 200 MG (100 MG,2 IN 1 D)
     Dates: start: 19990901, end: 20041101
  2. CELEBREX [Suspect]
     Indication: BACK PAIN
     Dosage: 200 MG (100 MG,2 IN 1 D)
     Dates: start: 19990901, end: 20041101

REACTIONS (1)
  - MYOCARDIAL INFARCTION [None]
